FAERS Safety Report 8182287-5 (Version None)
Quarter: 2012Q1

REPORT INFORMATION
  Report Type: 
  Country: None (occurrence: None)
  Receive Date: 20120302
  Receipt Date: 20120228
  Transmission Date: 20120608
  Serious: Yes (Hospitalization)
  Sender: FDA-Public Use
  Company Number: PHHY2012JP009519

PATIENT

DRUGS (5)
  1. NEORAL [Suspect]
     Dosage: UNK UKN, UNK
     Route: 048
     Dates: start: 20120206
  2. MEDROL [Concomitant]
     Dosage: UNK UKN, UNK
     Route: 048
  3. MYCOPHENOLATE MOFETIL (CELLCEPT) [Concomitant]
     Dosage: UNK UKN, UNK
     Route: 048
  4. NEORAL [Suspect]
     Indication: RENAL TRANSPLANT
     Dosage: UNK UKN, UNK
     Route: 048
  5. MEDROL [Concomitant]
     Dosage: UNK UKN, UNK
     Route: 048

REACTIONS (1)
  - CARDIAC DISORDER [None]
